FAERS Safety Report 17298157 (Version 1)
Quarter: 2020Q1

REPORT INFORMATION
  Report Type: Spontaneous
  Country: US (occurrence: US)
  Receive Date: 20200103
  Receipt Date: 20200103
  Transmission Date: 20200409
  Serious: No
  Sender: FDA-Public Use
  Company Number: None

PATIENT
  Age: 43 Year
  Sex: Male

DRUGS (1)
  1. ROSUVASTATIN TAB 5MG [Suspect]
     Active Substance: ROSUVASTATIN
     Route: 048
     Dates: start: 20191227, end: 20200103

REACTIONS (2)
  - Pollakiuria [None]
  - Abdominal pain [None]

NARRATIVE: CASE EVENT DATE: 20191227
